FAERS Safety Report 16481214 (Version 2)
Quarter: 2019Q3

REPORT INFORMATION
  Report Type: Spontaneous
  Country: US (occurrence: US)
  Receive Date: 20190626
  Receipt Date: 20190711
  Transmission Date: 20191004
  Serious: Yes (Hospitalization)
  Sender: FDA-Public Use
  Company Number: US-ACTELION-A-NJ2019-192334

PATIENT
  Age: 2 Year
  Sex: Female

DRUGS (3)
  1. TRACLEER [Suspect]
     Active Substance: BOSENTAN
     Dosage: 31.25 MG, BID
     Route: 048
  2. SILDENAFIL. [Suspect]
     Active Substance: SILDENAFIL
     Indication: PRODUCT USED FOR UNKNOWN INDICATION
     Dosage: 20 MG, QD
     Route: 065
  3. TRACLEER [Suspect]
     Active Substance: BOSENTAN
     Indication: PULMONARY ARTERIAL HYPERTENSION
     Dosage: 62.5 MG, BID
     Route: 048

REACTIONS (5)
  - Systemic-pulmonary artery shunt [Unknown]
  - Atrial septal defect repair [Unknown]
  - Cyanosis [Unknown]
  - Stent placement [Unknown]
  - Angioplasty [Unknown]

NARRATIVE: CASE EVENT DATE: 20190523
